FAERS Safety Report 6439766-8 (Version None)
Quarter: 2009Q4

REPORT INFORMATION
  Report Type: 
  Country: None (occurrence: None)
  Receive Date: 20091113
  Receipt Date: 20091016
  Transmission Date: 20100525
  Serious: No
  Sender: FDA-Public Use
  Company Number: US-BAYER-200915780BCC

PATIENT
  Age: 22 Year
  Sex: Female
  Weight: 61 kg

DRUGS (1)
  1. MIDOL [Suspect]
     Indication: DYSMENORRHOEA
     Dosage: TOOK 2 MIDOL EVERY 2 HOURS FROM 15 TO 17-OCT-2009
     Route: 048
     Dates: start: 20091015, end: 20091017

REACTIONS (1)
  - DYSMENORRHOEA [None]
